FAERS Safety Report 7619349-4 (Version None)
Quarter: 2011Q3

REPORT INFORMATION
  Report Type: 
  Country: None (occurrence: None)
  Receive Date: 20110719
  Receipt Date: 20110709
  Transmission Date: 20111222
  Serious: Yes (Other)
  Sender: FDA-Public Use
  Company Number: US-PAR PHARMACEUTICAL, INC-2011SCPR003106

PATIENT
  Age: 42 Year
  Sex: Male

DRUGS (3)
  1. CLOMIPHENE CITRATE [Suspect]
     Indication: TERATOSPERMIA
  2. CLOMIPHENE CITRATE [Suspect]
     Indication: ASTHENOSPERMIA
  3. CLOMIPHENE CITRATE [Suspect]
     Indication: AZOOSPERMIA
     Dosage: 25 MG, DAILY
     Route: 065

REACTIONS (3)
  - BLOOD TESTOSTERONE INCREASED [None]
  - OFF LABEL USE [None]
  - POLYCYTHAEMIA VERA [None]
